FAERS Safety Report 24757107 (Version 1)
Quarter: 2024Q4

REPORT INFORMATION
  Report Type: Report from Study
  Country: US (occurrence: US)
  Receive Date: 20241220
  Receipt Date: 20241220
  Transmission Date: 20250114
  Serious: Yes (Other)
  Sender: JOHNSON AND JOHNSON
  Company Number: US-JNJFOC-20241228937

PATIENT
  Age: 70 Year
  Sex: Female

DRUGS (2)
  1. SPRAVATO [Suspect]
     Active Substance: ESKETAMINE
     Indication: Depression
     Dosage: ?84 MG, 3 TOTAL DOSES?
     Route: 045
     Dates: start: 20241119, end: 20241210
  2. SPRAVATO [Suspect]
     Active Substance: ESKETAMINE
     Dosage: ?56 MG, 8 TOTAL DOSES?
     Route: 045
     Dates: start: 20241023, end: 20241114

REACTIONS (3)
  - Hallucinations, mixed [Not Recovered/Not Resolved]
  - Dissociation [Not Recovered/Not Resolved]
  - Dizziness [Not Recovered/Not Resolved]

NARRATIVE: CASE EVENT DATE: 20240101
